FAERS Safety Report 17352392 (Version 2)
Quarter: 2020Q1

REPORT INFORMATION
  Report Type: Report from Study
  Country: None (occurrence: BE)
  Receive Date: 20200130
  Receipt Date: 20200328
  Transmission Date: 20200409
  Serious: Yes (Hospitalization, Other)
  Sender: FDA-Public Use
  Company Number: BE-ABBVIE-20K-013-3256005-00

PATIENT
  Sex: Male

DRUGS (6)
  1. ESOMEPRAZOLE. [Concomitant]
     Active Substance: ESOMEPRAZOLE MAGNESIUM
     Indication: GASTROOESOPHAGEAL REFLUX DISEASE
     Route: 048
     Dates: start: 2018
  2. DUODOPA [Suspect]
     Active Substance: CARBIDOPA\LEVODOPA
     Dosage: DOSES CONTINUOUSLY MONITORED AND ADAPTED
     Route: 050
     Dates: start: 20191022, end: 20191213
  3. GUTRON [Concomitant]
     Active Substance: MIDODRINE
     Indication: HYPOTENSION
     Route: 048
     Dates: start: 2018
  4. DUODOPA [Suspect]
     Active Substance: CARBIDOPA\LEVODOPA
     Indication: PARKINSON^S DISEASE
     Dosage: MD:6ML, CD:4.8ML/HR DURING 16HRS, ED:1ML
     Route: 050
     Dates: start: 20191021, end: 20191022
  5. DUODOPA [Suspect]
     Active Substance: CARBIDOPA\LEVODOPA
     Dosage: MD:4ML, CD:4.3ML/HR DURING 16HRS, ED:2ML
     Route: 050
     Dates: start: 20191213, end: 20200113
  6. EXELON [Concomitant]
     Active Substance: RIVASTIGMINE TARTRATE
     Indication: DEMENTIA
     Dates: start: 2018

REACTIONS (6)
  - Cerebrovascular accident [Recovered/Resolved with Sequelae]
  - General physical health deterioration [Unknown]
  - Fall [Recovered/Resolved]
  - Therapeutic product effect incomplete [Unknown]
  - Apathy [Unknown]
  - Confusional state [Unknown]

NARRATIVE: CASE EVENT DATE: 20200114
